FAERS Safety Report 23605478 (Version 1)
Quarter: 2024Q1

REPORT INFORMATION
  Report Type: Spontaneous
  Country: US (occurrence: US)
  Receive Date: 20240307
  Receipt Date: 20240307
  Transmission Date: 20240410
  Serious: Yes (Hospitalization, Other)
  Sender: FDA-Public Use
  Company Number: US-SA-SAC20240306000582

PATIENT
  Age: 59 Year
  Sex: Male
  Weight: 85.2 kg

DRUGS (22)
  1. ELOXATIN [Suspect]
     Active Substance: OXALIPLATIN
     Indication: Colorectal cancer
     Dosage: 167.5 MG, QOW
     Route: 042
     Dates: start: 20220929, end: 20221116
  2. ENCORAFENIB [Suspect]
     Active Substance: ENCORAFENIB
     Indication: Colorectal cancer
     Dosage: 300 MG, QD
     Route: 048
     Dates: start: 20220929, end: 20221116
  3. CETUXIMAB [Suspect]
     Active Substance: CETUXIMAB
     Indication: Colorectal cancer
     Dosage: 1000 MG, QOW
     Route: 042
     Dates: start: 20220929, end: 20221116
  4. FLUOROURACIL [Suspect]
     Active Substance: FLUOROURACIL
     Indication: Colorectal cancer metastatic
     Dosage: 800 MG, QOW
     Route: 040
     Dates: start: 20220929, end: 20221116
  5. FLUOROURACIL [Suspect]
     Active Substance: FLUOROURACIL
     Dosage: 4725 MG, QOW
     Route: 041
     Dates: start: 20220929, end: 20221116
  6. LEUCOVORIN CALCIUM [Suspect]
     Active Substance: LEUCOVORIN CALCIUM
     Indication: Colorectal cancer
     Dosage: 800 MG, QOW
     Route: 042
     Dates: start: 20220929, end: 20221116
  7. LEVOLEUCOVORIN CALCIUM [Suspect]
     Active Substance: LEVOLEUCOVORIN CALCIUM
     Indication: Colorectal cancer
     Dosage: UNK
     Dates: start: 20220929, end: 20221116
  8. ZOFRAN [Concomitant]
     Active Substance: ONDANSETRON HYDROCHLORIDE
     Dosage: UNK
     Dates: start: 20221005
  9. TENORMIN [Concomitant]
     Active Substance: ATENOLOL
     Dosage: UNK
     Dates: start: 20130708, end: 20221112
  10. VARUBI [ROLAPITANT HYDROCHLORIDE MONOHYDRATE] [Concomitant]
     Dosage: UNK
     Dates: start: 20221102
  11. BENADRYL [Concomitant]
     Active Substance: DIPHENHYDRAMINE HYDROCHLORIDE
     Indication: Nausea
     Dosage: UNK
     Dates: start: 20221102
  12. DECADRON [Concomitant]
     Active Substance: DEXAMETHASONE
     Dosage: UNK
     Dates: start: 20221102
  13. IMODIUM [Concomitant]
     Active Substance: LOPERAMIDE HYDROCHLORIDE
     Dosage: UNK
     Dates: start: 20221007
  14. LEXAPRO [Concomitant]
     Active Substance: ESCITALOPRAM OXALATE
     Dosage: UNK
     Dates: start: 20220504
  15. ZOVIRAX [Concomitant]
     Active Substance: ACYCLOVIR
     Indication: Herpes simplex
     Dosage: 400 MG, TOTAL
     Dates: start: 2014
  16. LEUCOVORIN [Concomitant]
     Active Substance: LEUCOVORIN\LEUCOVORIN CALCIUM
  17. METHICILLIN [Concomitant]
     Active Substance: METHICILLIN
  18. CEFAZOLIN SODIUM [Concomitant]
     Active Substance: CEFAZOLIN SODIUM
  19. OXYCODONE [Concomitant]
     Active Substance: OXYCODONE\OXYCODONE HYDROCHLORIDE
  20. TRAMADOL HYDROCHLORIDE [Concomitant]
     Active Substance: TRAMADOL HYDROCHLORIDE
  21. CEPHALEXIN [Concomitant]
     Active Substance: CEPHALEXIN
  22. ATENOLOL [Concomitant]
     Active Substance: ATENOLOL
     Indication: Hypertension

REACTIONS (9)
  - Sepsis [Recovered/Resolved]
  - Cellulitis [Recovered/Resolved with Sequelae]
  - Metabolic encephalopathy [Recovered/Resolved]
  - Ecchymosis [Recovered/Resolved]
  - Chills [Recovered/Resolved]
  - Memory impairment [Recovered/Resolved]
  - Erythema [Recovered/Resolved with Sequelae]
  - Pain in extremity [Recovered/Resolved with Sequelae]
  - Oedema [Recovered/Resolved with Sequelae]

NARRATIVE: CASE EVENT DATE: 20221112
